FAERS Safety Report 8451296-0 (Version None)
Quarter: 2012Q2

REPORT INFORMATION
  Report Type: 
  Country: None (occurrence: None)
  Receive Date: 20120620
  Receipt Date: 20120321
  Transmission Date: 20120825
  Serious: No
  Sender: FDA-Public Use
  Company Number: US-VERTEX PHARMACEUTICALS INC.-AE-2012-002382

PATIENT
  Sex: Female
  Weight: 61.29 kg

DRUGS (3)
  1. INCIVEK [Suspect]
     Indication: HEPATITIS C
     Route: 048
     Dates: start: 20120119, end: 20120216
  2. RIBAVIRIN [Concomitant]
     Indication: HEPATITIS C
     Route: 048
     Dates: start: 20120119, end: 20120216
  3. PEGASYS [Concomitant]
     Indication: HEPATITIS C
     Route: 058
     Dates: start: 20120119, end: 20120216

REACTIONS (14)
  - INSOMNIA [None]
  - ABDOMINAL DISCOMFORT [None]
  - BEDRIDDEN [None]
  - ANAL PRURITUS [None]
  - ORAL HERPES [None]
  - DRUG INEFFECTIVE [None]
  - CONFUSIONAL STATE [None]
  - VOMITING [None]
  - SENSATION OF FOREIGN BODY [None]
  - OCULAR HYPERAEMIA [None]
  - EYELID PTOSIS [None]
  - DIARRHOEA [None]
  - GAIT DISTURBANCE [None]
  - ASTHENIA [None]
